FAERS Safety Report 6730009-4 (Version None)
Quarter: 2010Q2

REPORT INFORMATION
  Report Type: 
  Country: None (occurrence: None)
  Receive Date: 20100512
  Receipt Date: 20100119
  Transmission Date: 20101027
  Serious: Yes (Other)
  Sender: FDA-Public Use
  Company Number: 1000011381

PATIENT
  Age: 60 Year
  Sex: Female

DRUGS (2)
  1. SAVELLA [Suspect]
     Dosage: SEE IMAGE
     Route: 048
  2. SAVELLA [Suspect]
     Dosage: 200 MG (100 MG, 2 IN 1 D), ORAL ; 100 MG (50 MG, 2 IN 1 D), ORAL
     Route: 048

REACTIONS (1)
  - SUICIDAL IDEATION [None]
